FAERS Safety Report 10677325 (Version 6)
Quarter: 2015Q2

REPORT INFORMATION
  Report Type: Report from Study
  Country: DE (occurrence: DE)
  Receive Date: 20141226
  Receipt Date: 20150514
  Transmission Date: 20150821
  Serious: Yes (Hospitalization, Other)
  Sender: FDA-Public Use
  Company Number: DE-JNJFOC-20141208471

PATIENT
  Age: 83 Year
  Sex: Male
  Weight: 88 kg

DRUGS (11)
  1. SPIRONOLACTON [Concomitant]
     Active Substance: SPIRONOLACTONE
     Indication: OEDEMA
     Route: 065
     Dates: start: 20141104
  2. POLYHEXANIDE [Concomitant]
     Indication: LACERATION
     Route: 065
     Dates: start: 20141115, end: 20141115
  3. CLOPIDOGREL [Concomitant]
     Active Substance: CLOPIDOGREL BISULFATE
     Indication: ANTIPLATELET THERAPY
     Route: 065
     Dates: start: 20140919, end: 20150318
  4. ASA [Concomitant]
     Active Substance: ASPIRIN
     Indication: EPISTAXIS
     Route: 065
     Dates: start: 20140919, end: 20141208
  5. ASA [Concomitant]
     Active Substance: ASPIRIN
     Indication: EPISTAXIS
     Route: 065
     Dates: start: 20150212
  6. RIVAROXABAN [Suspect]
     Active Substance: RIVAROXABAN
     Indication: CEREBROVASCULAR ACCIDENT PROPHYLAXIS
     Route: 048
     Dates: start: 20140919
  7. SIMVASTATIN. [Concomitant]
     Active Substance: SIMVASTATIN
     Indication: PROPHYLAXIS
     Route: 065
     Dates: start: 2009
  8. ASA [Concomitant]
     Active Substance: ASPIRIN
     Indication: EPISTAXIS
     Route: 065
     Dates: start: 20150119, end: 20150211
  9. RIVAROXABAN [Suspect]
     Active Substance: RIVAROXABAN
     Indication: ATRIAL FIBRILLATION
     Route: 048
     Dates: start: 20140919
  10. CANDESARTAN [Concomitant]
     Active Substance: CANDESARTAN
     Indication: HYPERTENSION
     Route: 065
     Dates: start: 2005
  11. METOPROLOL [Concomitant]
     Active Substance: METOPROLOL
     Indication: HYPERTENSION
     Route: 065
     Dates: start: 2009

REACTIONS (2)
  - Epistaxis [Recovered/Resolved]
  - Renal failure [Recovered/Resolved]

NARRATIVE: CASE EVENT DATE: 20141211
